FAERS Safety Report 8554753 (Version 4)
Quarter: 2013Q2

REPORT INFORMATION
  Report Type: Spontaneous
  Country: US (occurrence: US)
  Receive Date: 20120510
  Receipt Date: 20130510
  Transmission Date: 20140414
  Serious: Yes (Hospitalization, Other)
  Sender: FDA-Public Use
  Company Number: US-BIOGENIDEC-2012BI014960

PATIENT
  Age: 45 Year
  Sex: Female

DRUGS (4)
  1. AVONEX [Suspect]
     Indication: MULTIPLE SCLEROSIS
     Route: 030
     Dates: start: 20020515
  2. AVONEX [Suspect]
     Indication: MULTIPLE SCLEROSIS
     Route: 030
  3. AVONEX [Suspect]
     Indication: MULTIPLE SCLEROSIS
     Route: 030
     Dates: end: 2012
  4. AVONEX [Suspect]
     Indication: MULTIPLE SCLEROSIS
     Route: 030
     Dates: end: 20130130

REACTIONS (16)
  - Diabetic coma [Recovered/Resolved]
  - Myocardial infarction [Recovered/Resolved]
  - Eye movement disorder [Recovered/Resolved]
  - Fall [Recovered/Resolved]
  - Convulsion [Recovered/Resolved]
  - Liver disorder [Unknown]
  - Red blood cell morphology normal [Unknown]
  - Ankle fracture [Recovered/Resolved]
  - Laceration [Recovered/Resolved]
  - Influenza [Recovered/Resolved]
  - Muscle twitching [Not Recovered/Not Resolved]
  - Central nervous system lesion [Not Recovered/Not Resolved]
  - Nasopharyngitis [Not Recovered/Not Resolved]
  - Tremor [Recovered/Resolved]
  - Influenza like illness [Recovered/Resolved]
  - Headache [Recovered/Resolved]
